FAERS Safety Report 25676309 (Version 1)
Quarter: 2025Q3

REPORT INFORMATION
  Report Type: Report from Study
  Country: US (occurrence: US)
  Receive Date: 20250813
  Receipt Date: 20250813
  Transmission Date: 20251021
  Serious: Yes (Other)
  Sender: RECORDATI
  Company Number: US-ORPHANEU-2025005727

PATIENT
  Age: 70 Year
  Sex: Male

DRUGS (4)
  1. SILTUXIMAB [Suspect]
     Active Substance: SILTUXIMAB
     Indication: Haemophagocytic lymphohistiocytosis
  2. ANAKINRA [Suspect]
     Active Substance: ANAKINRA
     Indication: Haemophagocytic lymphohistiocytosis
  3. EMAPALUMAB [Suspect]
     Active Substance: EMAPALUMAB
     Indication: Haemophagocytic lymphohistiocytosis
  4. ETOPOSIDE [Suspect]
     Active Substance: ETOPOSIDE
     Indication: Haemophagocytic lymphohistiocytosis

REACTIONS (3)
  - Septic shock [Unknown]
  - Neutropenic colitis [Unknown]
  - Drug effective for unapproved indication [Recovered/Resolved]
